FAERS Safety Report 8379057-1 (Version None)
Quarter: 2012Q2

REPORT INFORMATION
  Report Type: 
  Country: None (occurrence: None)
  Receive Date: 20120522
  Receipt Date: 20120522
  Transmission Date: 20120825
  Serious: Yes (Death)
  Sender: FDA-Public Use
  Company Number: None

PATIENT
  Sex: Male

DRUGS (1)
  1. SUTENT [Suspect]
     Indication: GASTRIC CANCER
     Dosage: 50MG QD PO
     Route: 048
     Dates: start: 20111007

REACTIONS (2)
  - GASTRIC CANCER [None]
  - NEOPLASM PROGRESSION [None]
